FAERS Safety Report 8465099-4 (Version None)
Quarter: 2012Q2

REPORT INFORMATION
  Report Type: 
  Country: None (occurrence: None)
  Receive Date: 20120626
  Receipt Date: 20120618
  Transmission Date: 20120825
  Serious: Yes (Other)
  Sender: FDA-Public Use
  Company Number: US-BAYER-2012-061139

PATIENT
  Age: 21 Year
  Sex: Female
  Weight: 61.23 kg

DRUGS (3)
  1. PERCOCET [Concomitant]
  2. YAZ [Suspect]
  3. YASMIN [Suspect]

REACTIONS (2)
  - DEEP VEIN THROMBOSIS [None]
  - PULMONARY EMBOLISM [None]
